FAERS Safety Report 4806785-4 (Version None)
Quarter: 2005Q4

REPORT INFORMATION
  Report Type: 
  Country: None (occurrence: None)
  Receive Date: 20051019
  Receipt Date: 20051005
  Transmission Date: 20060501
  Serious: Yes (Disabling)
  Sender: FDA-Public Use
  Company Number: JP_051007771

PATIENT
  Age: 81 Year
  Sex: Female
  Weight: 58 kg

DRUGS (2)
  1. EVISTA [Suspect]
     Indication: OSTEOPOROSIS POSTMENOPAUSAL
     Dosage: 60 MG/L DAY
     Dates: start: 20050422, end: 20050506
  2. MECOBALAMIN [Concomitant]

REACTIONS (3)
  - BLINDNESS UNILATERAL [None]
  - OCULAR VASCULAR DISORDER [None]
  - VASCULAR OCCLUSION [None]
